FAERS Safety Report 19470050 (Version 1)
Quarter: 2021Q2

REPORT INFORMATION
  Report Type: Spontaneous
  Country: CZ (occurrence: CZ)
  Receive Date: 20210628
  Receipt Date: 20210628
  Transmission Date: 20210717
  Serious: Yes (Other)
  Sender: FDA-Public Use
  Company Number: CZ-MYLANLABS-2021M1037274

PATIENT
  Age: 36 Year
  Sex: Female

DRUGS (6)
  1. LETROZOLE. [Suspect]
     Active Substance: LETROZOLE
     Indication: BREAST CANCER
     Dosage: 2.5 MILLIGRAM
     Route: 048
     Dates: start: 201911
  2. DENOSUMAB [Concomitant]
     Active Substance: DENOSUMAB
     Indication: BONE DISORDER
     Dosage: 120 MILLIGRAM, MONTHLY
     Route: 058
     Dates: start: 201911
  3. CALCIUM [Concomitant]
     Active Substance: CALCIUM
     Indication: BONE DISORDER
     Dosage: UNK
     Dates: start: 201911
  4. CHOLECALCIFEROL [Concomitant]
     Active Substance: CHOLECALCIFEROL
     Indication: BONE DISORDER
     Dosage: 120 MILLIGRAM, MONTHLY
     Dates: start: 201911
  5. KISQALI [Suspect]
     Active Substance: RIBOCICLIB
     Indication: BREAST CANCER
     Dosage: UNK
     Dates: start: 201911
  6. LHRH [Concomitant]
     Active Substance: GONADORELIN DIACETATE TETRAHYDRATE
     Indication: BREAST CANCER
     Dosage: 3.6 MILLIGRAM
     Dates: start: 201911

REACTIONS (1)
  - Hepatotoxicity [Recovered/Resolved]
